FAERS Safety Report 8580540-4 (Version None)
Quarter: 2012Q3

REPORT INFORMATION
  Report Type: 
  Country: None (occurrence: None)
  Receive Date: 20120808
  Receipt Date: 20120730
  Transmission Date: 20120928
  Serious: No
  Sender: FDA-Public Use
  Company Number: US-ASTRAZENECA-2012SE53776

PATIENT
  Age: 43 Year
  Sex: Female
  Weight: 50.8 kg

DRUGS (3)
  1. ZOMIG [Suspect]
     Indication: MIGRAINE
     Route: 048
     Dates: start: 20070101, end: 20120704
  2. ZOMIG [Suspect]
     Dosage: PRN
     Route: 045
  3. TOPAMAX [Concomitant]
     Indication: MIGRAINE PROPHYLAXIS

REACTIONS (3)
  - MIGRAINE [None]
  - DRUG DOSE OMISSION [None]
  - NASAL DISCOMFORT [None]
